FAERS Safety Report 5242672-8 (Version None)
Quarter: 2007Q1

REPORT INFORMATION
  Report Type: 
  Country: None (occurrence: None)
  Receive Date: 20070214
  Receipt Date: 20070131
  Transmission Date: 20070707
  Serious: Yes (Life-Threatening, Hospitalization)
  Sender: FDA-Public Use
  Company Number: E2020-00926-SPO-JP

PATIENT
  Age: 70 Year
  Sex: Male

DRUGS (4)
  1. ARICEPT [Suspect]
     Indication: DEMENTIA
     Dosage: SEE IMAGE
     Route: 048
     Dates: start: 20070101, end: 20070101
  2. ARICEPT [Suspect]
     Indication: DEMENTIA
     Dosage: SEE IMAGE
     Route: 048
     Dates: start: 20070101, end: 20070124
  3. RISPERDAL [Concomitant]
  4. ADALAT [Concomitant]

REACTIONS (2)
  - COMA [None]
  - RESPIRATORY FAILURE [None]
